FAERS Safety Report 7979963-3 (Version None)
Quarter: 2011Q4

REPORT INFORMATION
  Report Type: 
  Country: None (occurrence: None)
  Receive Date: 20111214
  Receipt Date: 20111206
  Transmission Date: 20120403
  Serious: Yes (Hospitalization)
  Sender: FDA-Public Use
  Company Number: US-ROCHE-1008278

PATIENT
  Sex: Male

DRUGS (1)
  1. ZELBORAF [Suspect]
     Indication: PRODUCT USED FOR UNKNOWN INDICATION

REACTIONS (10)
  - FATIGUE [None]
  - ALOPECIA [None]
  - HEART RATE INCREASED [None]
  - NIGHT SWEATS [None]
  - OCULAR HYPERAEMIA [None]
  - SUNBURN [None]
  - HYPERHIDROSIS [None]
  - EYE PAIN [None]
  - HEADACHE [None]
  - VENTRICULAR TACHYCARDIA [None]
